FAERS Safety Report 19881256 (Version 1)
Quarter: 2021Q3

REPORT INFORMATION
  Report Type: Spontaneous
  Country: NL (occurrence: NL)
  Receive Date: 20210924
  Receipt Date: 20210924
  Transmission Date: 20211014
  Serious: Yes (Other)
  Sender: FDA-Public Use
  Company Number: NL-MYLANLABS-2021M1065034

PATIENT
  Age: 86 Year
  Sex: Male
  Weight: 73 kg

DRUGS (12)
  1. BISOPROLOL [Concomitant]
     Active Substance: BISOPROLOL
     Dosage: 2.5 MILLIGRAM (TABLET, 2,5 MG (MILLIGRAM))
  2. TAMSULOSIN [Suspect]
     Active Substance: TAMSULOSIN
     Indication: URINARY RETENTION
     Dosage: 0.4 MILLIGRAM, QD (1X PER DAG 1 STUK)
     Route: 065
     Dates: start: 20210819, end: 20210820
  3. MACROGOL [Concomitant]
     Active Substance: POLYETHYLENE GLYCOLS
     Dosage: UNK (POWDER FOR DRINK)
  4. ESOMEPRAZOL                        /01479301/ [Concomitant]
     Active Substance: ESOMEPRAZOLE
     Dosage: 40 MILLIGRAM (MAAGSAPRESISTENTE TABLET, 40 MG (MILLIGRAM))
  5. CYANOCOBALAMINE [Concomitant]
     Active Substance: CYANOCOBALAMIN
     Dosage: 1000 MICROGRAM (TABLET, 1000 ?G (MICROGRAM))
  6. MIRTAZAPINE. [Concomitant]
     Active Substance: MIRTAZAPINE
     Dosage: 15 MILLIGRAM (SMELTTABLET, 15 MG (MILLIGRAM))
  7. COLECALCIFEROL [Concomitant]
     Active Substance: CHOLECALCIFEROL
     Dosage: 800 INTERNATIONAL UNIT (TABLET, 800 EENHEDEN)
  8. QUETIAPINE. [Concomitant]
     Active Substance: QUETIAPINE
     Dosage: 12.5 MILLIGRAM (TABLET, 12,5 MG (MILLIGRAM))
  9. SERTRALINE [Concomitant]
     Active Substance: SERTRALINE HYDROCHLORIDE
     Dosage: 50 MILLIGRAM (TABLET, 50 MG (MILLIGRAM))
  10. NATRIUMCHLORIDE [Concomitant]
     Active Substance: SODIUM CHLORIDE
     Dosage: 9 MILLIGRAM PER MILLILITRE (INFUSION FLUID, 9 MG/ML(MILLIGRAMS PER MILLILITER))
  11. ISOSORBIDEMONONITRAAT [Concomitant]
     Dosage: 25 MILLIGRAM (MODIFIED?RELEASE CAPSULE, 25 MG(MILLIGRAMS))
  12. RIVAROXABAN [Concomitant]
     Active Substance: RIVAROXABAN
     Dosage: 15 MILLIGRAM (TABLET, 15 MG (MILLIGRAM))

REACTIONS (3)
  - Orthostatic hypotension [Recovering/Resolving]
  - Nightmare [Recovered/Resolved]
  - Psychotic symptom [Recovered/Resolved]

NARRATIVE: CASE EVENT DATE: 20210820
